FAERS Safety Report 23934004 (Version 1)
Quarter: 2024Q2

REPORT INFORMATION
  Report Type: Spontaneous
  Country: US (occurrence: None)
  Receive Date: 20240603
  Receipt Date: 20240603
  Transmission Date: 20240716
  Serious: Yes (Other)
  Sender: FDA-Public Use
  Company Number: None

PATIENT
  Age: 55 Year
  Sex: Male

DRUGS (10)
  1. REPATHA [Suspect]
     Active Substance: EVOLOCUMAB
     Indication: Hypercholesterolaemia
     Dosage: FREQUENCY : EVERY OTHER WEEK;?
     Route: 058
     Dates: start: 20220422, end: 20240415
  2. ASPIRIN [Concomitant]
     Active Substance: ASPIRIN
  3. PEPCID [Concomitant]
     Active Substance: FAMOTIDINE
  4. VITAMIN D [Concomitant]
     Active Substance: VITAMIN D NOS
  5. CETIRIZINE [Concomitant]
     Active Substance: CETIRIZINE HYDROCHLORIDE
  6. VITAMINS [Concomitant]
     Active Substance: VITAMINS
  7. CITRACAL PLUS D [Concomitant]
  8. IBUPROFEN [Concomitant]
     Active Substance: IBUPROFEN
  9. TYLENOL [Concomitant]
     Active Substance: ACETAMINOPHEN
  10. ELIQUIS [Concomitant]
     Active Substance: APIXABAN

REACTIONS (3)
  - Arthralgia [None]
  - Back pain [None]
  - Therapy interrupted [None]

NARRATIVE: CASE EVENT DATE: 20240515
